FAERS Safety Report 17251182 (Version 1)
Quarter: 2020Q1

REPORT INFORMATION
  Report Type: Spontaneous
  Country: US (occurrence: US)
  Receive Date: 20200109
  Receipt Date: 20200109
  Transmission Date: 20200409
  Serious: Yes (Other)
  Sender: FDA-Public Use
  Company Number: US-RECKITT BENCKISER HEALTHCARE INT LIMITED-RB-80381-2020

PATIENT
  Sex: Female

DRUGS (1)
  1. DELSYM [Suspect]
     Active Substance: DEXTROMETHORPHAN
     Indication: COUGH
     Dosage: UNK
     Route: 048
     Dates: start: 20200101

REACTIONS (3)
  - Feeling drunk [Unknown]
  - Emotional disorder [Unknown]
  - Overdose [Unknown]

NARRATIVE: CASE EVENT DATE: 20200101
